FAERS Safety Report 9144667 (Version 1)
Quarter: 2013Q1

REPORT INFORMATION
  Report Type: Spontaneous
  Country: US (occurrence: US)
  Receive Date: 20130306
  Receipt Date: 20130306
  Transmission Date: 20140127
  Serious: Yes (Other)
  Sender: FDA-Public Use
  Company Number: US-PFIZER INC-2013076597

PATIENT
  Age: 47 Year
  Sex: Male

DRUGS (2)
  1. GABAPENTIN [Suspect]
     Indication: NEURALGIA
     Dosage: 600 MG, UNK
     Dates: start: 20120224, end: 20120224
  2. GABAPENTIN [Suspect]
     Dosage: 600 MG, UNK
     Dates: start: 2012, end: 2012

REACTIONS (7)
  - Convulsion [Unknown]
  - Depression [Not Recovered/Not Resolved]
  - Amnesia [Unknown]
  - Disorientation [Unknown]
  - Somnambulism [Unknown]
  - Abnormal behaviour [Unknown]
  - Incorrect dose administered [Unknown]
